FAERS Safety Report 6776194 (Version 5)
Quarter: 2013Q1

REPORT INFORMATION
  Report Type: Report from Study
  Country: DK (occurrence: DK)
  Receive Date: 20081001
  Receipt Date: 20130224
  Transmission Date: 20140127
  Serious: Yes (Life-Threatening, Hospitalization, Other)
  Sender: FDA-Public Use
  Company Number: DK-ELI_LILLY_AND_COMPANY-DK200809004732

PATIENT
  Age: 78 None
  Sex: Female

DRUGS (5)
  1. TERIPARATIDE [Suspect]
     Indication: OSTEOPOROSIS
     Dosage: 20 UG, QD
     Route: 065
     Dates: start: 20070821, end: 20080822
  2. FURIX [Concomitant]
     Indication: ACUTE MYOCARDIAL INFARCTION
     Dosage: 40 MBQ, DAILY (1/D)
     Route: 065
  3. PLAVIX [Concomitant]
     Indication: ACUTE MYOCARDIAL INFARCTION
     Dosage: 75 MG, DAILY (1/D)
     Route: 065
  4. SELOZOK [Concomitant]
     Indication: ACUTE MYOCARDIAL INFARCTION
     Dosage: 50 MG, 2/D
     Route: 065
  5. CORODIL [Concomitant]
     Indication: ACUTE MYOCARDIAL INFARCTION
     Dosage: 5 MG, DAILY (1/D)
     Route: 065

REACTIONS (2)
  - Acute myocardial infarction [Recovered/Resolved]
  - Coronary artery disease [Unknown]
